FAERS Safety Report 20130847 (Version 1)
Quarter: 2021Q4

REPORT INFORMATION
  Report Type: Spontaneous
  Country: US (occurrence: US)
  Receive Date: 20211130
  Receipt Date: 20211130
  Transmission Date: 20220303
  Serious: No
  Sender: FDA-Public Use
  Company Number: US-PERRIGO-21US028816

PATIENT

DRUGS (1)
  1. NICOTINE POLACRILEX [Suspect]
     Active Substance: NICOTINE
     Indication: Product used for unknown indication
     Dosage: 4 MG, SINGLE
     Route: 048
     Dates: start: 202109, end: 202109

REACTIONS (11)
  - Oral discomfort [Unknown]
  - Oesophageal pain [None]
  - Cough [Recovered/Resolved]
  - Abdominal pain upper [Unknown]
  - Gastrointestinal sounds abnormal [Unknown]
  - Anorectal discomfort [Recovered/Resolved]
  - Throat irritation [Unknown]
  - Dizziness [Unknown]
  - Nausea [Unknown]
  - Diarrhoea [Recovered/Resolved]
  - Incorrect route of product administration [Recovered/Resolved]

NARRATIVE: CASE EVENT DATE: 20210901
